FAERS Safety Report 4884087-8 (Version None)
Quarter: 2006Q1

REPORT INFORMATION
  Report Type: 
  Country: None (occurrence: None)
  Receive Date: 20060117
  Receipt Date: 20060105
  Transmission Date: 20060701
  Serious: Yes (Hospitalization)
  Sender: FDA-Public Use
  Company Number: 13181

PATIENT
  Age: 57 Year
  Sex: Female

DRUGS (5)
  1. FLUCONAZOLE [Suspect]
     Indication: PNEUMONITIS CRYPTOCOCCAL
  2. AMITRIPTYLINE HCL [Suspect]
     Indication: DEPRESSION
  3. LISINOPRIL [Concomitant]
  4. SERTRALINE [Concomitant]
  5. IRON SUPPLEMENT [Concomitant]

REACTIONS (18)
  - BACK INJURY [None]
  - BACK PAIN [None]
  - CACHEXIA [None]
  - CHEST DISCOMFORT [None]
  - CORONARY ARTERY DISEASE [None]
  - DIZZINESS [None]
  - DYSPNOEA EXERTIONAL [None]
  - ELECTROCARDIOGRAM QT PROLONGED [None]
  - FATIGUE [None]
  - HYPOKALAEMIA [None]
  - LOSS OF CONSCIOUSNESS [None]
  - NECK INJURY [None]
  - RHONCHI [None]
  - SINUS BRADYCARDIA [None]
  - TORSADE DE POINTES [None]
  - TREMOR [None]
  - VENTRICULAR EXTRASYSTOLES [None]
  - WEIGHT DECREASED [None]
